FAERS Safety Report 4532323-X (Version None)
Quarter: 2004Q4

REPORT INFORMATION
  Report Type: 
  Country: None (occurrence: None)
  Receive Date: 20041217
  Receipt Date: 20041208
  Transmission Date: 20050328
  Serious: Yes (Hospitalization)
  Sender: FDA-Public Use
  Company Number: US-2004-030027

PATIENT
  Age: 47 Year
  Sex: Male
  Weight: 65.8 kg

DRUGS (3)
  1. BETASERON [Suspect]
     Indication: RELAPSING-REMITTING MULTIPLE SCLEROSIS
     Dosage: 8 MIU, EVERY 2D, SUBCUTANEOUS
     Route: 058
     Dates: start: 20040704, end: 20040727
  2. NORVASC [Concomitant]
  3. BACLOFEN [Concomitant]

REACTIONS (2)
  - DECUBITUS ULCER [None]
  - INFECTED SKIN ULCER [None]
